FAERS Safety Report 9106610 (Version 1)
Quarter: 2013Q1

REPORT INFORMATION
  Report Type: Spontaneous
  Country: US (occurrence: US)
  Receive Date: 20130221
  Receipt Date: 20130221
  Transmission Date: 20140127
  Serious: Yes (Other)
  Sender: FDA-Public Use
  Company Number: US-ELI_LILLY_AND_COMPANY-US201302003587

PATIENT
  Sex: Male

DRUGS (1)
  1. CYMBALTA [Suspect]
     Indication: RHEUMATOID ARTHRITIS
     Dosage: 30 MG, UNK

REACTIONS (8)
  - Costochondritis [Unknown]
  - Fall [Unknown]
  - Suicide attempt [Unknown]
  - Depression [Unknown]
  - Pain [Unknown]
  - Stress [Unknown]
  - Visual impairment [Unknown]
  - Cyclothymic disorder [Unknown]
